FAERS Safety Report 10146237 (Version 1)
Quarter: 2014Q2

REPORT INFORMATION
  Report Type: Spontaneous
  Country: US (occurrence: US)
  Receive Date: 20140501
  Receipt Date: 20140501
  Transmission Date: 20141212
  Serious: Yes (Hospitalization)
  Sender: FDA-Public Use
  Company Number: US-ELI_LILLY_AND_COMPANY-US201404008095

PATIENT
  Sex: Female

DRUGS (3)
  1. HUMULIN NPH [Suspect]
     Indication: TYPE 2 DIABETES MELLITUS
     Dosage: 60 U, QID
     Route: 065
     Dates: start: 1988
  2. HUMALOG LISPRO [Suspect]
     Indication: TYPE 2 DIABETES MELLITUS
     Dosage: UNK, PRN
     Route: 065
     Dates: start: 1988
  3. LEVEMIR [Concomitant]
     Dosage: 100 U, UNKNOWN
     Route: 065

REACTIONS (3)
  - Road traffic accident [Unknown]
  - Visual acuity reduced [Unknown]
  - Mobility decreased [Unknown]
